FAERS Safety Report 6724878-1 (Version None)
Quarter: 2010Q2

REPORT INFORMATION
  Report Type: 
  Country: None (occurrence: None)
  Receive Date: 20100513
  Receipt Date: 20100513
  Transmission Date: 20101027
  Serious: Yes (Hospitalization)
  Sender: FDA-Public Use
  Company Number: None

PATIENT
  Age: 64 Year
  Sex: Male
  Weight: 84.4 kg

DRUGS (1)
  1. PIPERACILLIN AND TAZOBACTAM [Suspect]
     Indication: UPPER RESPIRATORY TRACT INFECTION
     Dosage: 4.6 GM OTHER IV
     Route: 042
     Dates: start: 20100328, end: 20100330

REACTIONS (3)
  - ANAPHYLACTIC REACTION [None]
  - PURPURA [None]
  - RASH [None]
